FAERS Safety Report 11934109 (Version 2)
Quarter: 2016Q1

REPORT INFORMATION
  Report Type: Report from Study
  Country: US (occurrence: US)
  Receive Date: 20160121
  Receipt Date: 20160211
  Transmission Date: 20160526
  Serious: Yes (Hospitalization, Other)
  Sender: FDA-Public Use
  Company Number: US-JNJFOC-20160113629

PATIENT
  Age: 74 Year
  Sex: Male

DRUGS (1)
  1. IMBRUVICA [Suspect]
     Active Substance: IBRUTINIB
     Indication: CHRONIC LYMPHOCYTIC LEUKAEMIA
     Route: 048
     Dates: start: 20151010

REACTIONS (10)
  - Pneumonia [Unknown]
  - Pyrexia [Unknown]
  - Staphylococcal infection [Unknown]
  - Head injury [Unknown]
  - Platelet count decreased [Unknown]
  - Fatigue [Unknown]
  - Spinal fracture [Unknown]
  - Road traffic accident [Unknown]
  - Traumatic haemorrhage [Unknown]
  - Blood carbon monoxide increased [Unknown]

NARRATIVE: CASE EVENT DATE: 20160110
